FAERS Safety Report 15451557 (Version 2)
Quarter: 2019Q2

REPORT INFORMATION
  Report Type: Spontaneous
  Country: JP (occurrence: JP)
  Receive Date: 20181001
  Receipt Date: 20190430
  Transmission Date: 20190711
  Serious: Yes (Hospitalization, Other)
  Sender: FDA-Public Use
  Company Number: GXJP2018JP001512

PATIENT
  Age: 81 Year
  Sex: Female

DRUGS (5)
  1. BETAMETHASONE. [Interacting]
     Active Substance: BETAMETHASONE
     Dosage: 0.8 MG, UNK (DOSE BEFORE ADMISSION)
     Route: 048
  2. BETAMETHASONE. [Interacting]
     Active Substance: BETAMETHASONE
     Dosage: 4 MG, UNK (DURING HOSPITALIZATION)
     Route: 048
  3. BETAMETHASONE. [Interacting]
     Active Substance: BETAMETHASONE
     Indication: PRODUCT USED FOR UNKNOWN INDICATION
     Dosage: UNK
     Route: 048
  4. BETAMETHASONE. [Interacting]
     Active Substance: BETAMETHASONE
     Dosage: 2 MG, QD
     Route: 048
  5. RIFAMPICIN CAPSULES [Suspect]
     Active Substance: RIFAMPIN
     Indication: PRODUCT USED FOR UNKNOWN INDICATION
     Route: 048

REACTIONS (4)
  - Drug interaction [Recovered/Resolved]
  - Adrenal insufficiency [Recovered/Resolved]
  - Vomiting [Recovered/Resolved]
  - Hyponatraemia [Recovered/Resolved]
